FAERS Safety Report 6014161-4 (Version None)
Quarter: 2008Q4

REPORT INFORMATION
  Report Type: 
  Country: None (occurrence: None)
  Receive Date: 20081219
  Receipt Date: 20080225
  Transmission Date: 20090506
  Serious: No
  Sender: FDA-Public Use
  Company Number: A0704966A

PATIENT
  Age: 87 Year
  Sex: Male
  Weight: 68.2 kg

DRUGS (1)
  1. AVODART [Suspect]
     Indication: DRUG USE FOR UNKNOWN INDICATION
     Route: 048
     Dates: start: 20070601

REACTIONS (3)
  - BREAST ENLARGEMENT [None]
  - BREAST TENDERNESS [None]
  - NIPPLE PAIN [None]
